FAERS Safety Report 9415169 (Version 2)
Quarter: 2013Q3

REPORT INFORMATION
  Report Type: Spontaneous
  Country: DE (occurrence: DE)
  Receive Date: 20130723
  Receipt Date: 20130829
  Transmission Date: 20140515
  Serious: Yes (Death, Hospitalization)
  Sender: FDA-Public Use
  Company Number: DE-JNJFOC-20130709717

PATIENT
  Age: 79 Year
  Sex: Male
  Weight: 120 kg

DRUGS (5)
  1. XARELTO [Suspect]
     Indication: PRODUCT USED FOR UNKNOWN INDICATION
     Route: 048
  2. RAMIPRIL [Concomitant]
     Route: 065
  3. METOPROLOL [Concomitant]
     Route: 065
  4. AMLODIPINE [Concomitant]
     Route: 065
  5. TORASEMID [Concomitant]
     Route: 065

REACTIONS (7)
  - Muscle haemorrhage [Fatal]
  - Compartment syndrome [Fatal]
  - Haematoma [Fatal]
  - Fall [Unknown]
  - Dizziness [Unknown]
  - Visual impairment [Unknown]
  - Contusion [Fatal]
